FAERS Safety Report 6793418-3 (Version None)
Quarter: 2010Q2

REPORT INFORMATION
  Report Type: 
  Country: None (occurrence: None)
  Receive Date: 20100624
  Receipt Date: 20100223
  Transmission Date: 20101027
  Serious: Yes (Other)
  Sender: FDA-Public Use
  Company Number: US-MYLANLABS-2010S1003015

PATIENT
  Age: 59 Year
  Sex: Female

DRUGS (2)
  1. CLOZAPINE [Suspect]
     Indication: SCHIZOPHRENIA, PARANOID TYPE
     Route: 048
     Dates: end: 20100217
  2. CLONAZEPAM [Concomitant]
     Indication: SCHIZOPHRENIA, PARANOID TYPE
     Route: 048

REACTIONS (2)
  - GRANULOCYTOPENIA [None]
  - LEUKOPENIA [None]
